FAERS Safety Report 6622294-4 (Version None)
Quarter: 2010Q1

REPORT INFORMATION
  Report Type: 
  Country: None (occurrence: None)
  Receive Date: 20100310
  Receipt Date: 20100223
  Transmission Date: 20100710
  Serious: Yes (Hospitalization)
  Sender: FDA-Public Use
  Company Number: US-ELI_LILLY_AND_COMPANY-US201003000214

PATIENT
  Sex: Female

DRUGS (13)
  1. FORTEO [Suspect]
     Dosage: 20 UG, DAILY (1/D)
     Dates: start: 20091201, end: 20100219
  2. EFFEXOR XR [Concomitant]
     Dosage: 75 MG, UNK
  3. JANUVIA [Concomitant]
     Dosage: 100 MG, UNK
  4. FUROSEMIDE [Concomitant]
     Dosage: 20 MG, UNK
  5. COLCHICINE [Concomitant]
     Dosage: 0.6 MG, UNK
  6. LISINOPRIL [Concomitant]
     Dosage: 20 MG, 2/D
  7. NAMENDA [Concomitant]
     Dosage: 5 MG, 2/D
  8. TRAMADOL HCL [Concomitant]
     Dosage: 50 MG, 2/D
  9. OMEPRAZOLE [Concomitant]
     Dosage: 20 MG, UNK
  10. LABETALOL HCL [Concomitant]
     Dosage: 200 MG, 2/D
  11. ZOCOR [Concomitant]
     Dosage: 40 MG, UNK
  12. COUMADIN [Concomitant]
     Dosage: 5 MG, 3/W
  13. COUMADIN [Concomitant]
     Dosage: 4 MG, 4/W

REACTIONS (2)
  - MUSCULOSKELETAL CHEST PAIN [None]
  - URINARY TRACT INFECTION [None]
